FAERS Safety Report 5580172-6 (Version None)
Quarter: 2007Q4

REPORT INFORMATION
  Report Type: 
  Country: None (occurrence: None)
  Receive Date: 20071227
  Receipt Date: 20071227
  Transmission Date: 20080405
  Serious: No
  Sender: FDA-Public Use
  Company Number: None

PATIENT
  Age: 26 Year
  Weight: 80 kg

DRUGS (1)
  1. MINOXIDIL [Suspect]
     Indication: MALE PATTERN BALDNESS
     Dosage: 1 ML 2X DAILY TOP
     Route: 061
     Dates: start: 20050901, end: 20060901

REACTIONS (2)
  - SKIN DISORDER [None]
  - SKIN WRINKLING [None]
